FAERS Safety Report 24449414 (Version 4)
Quarter: 2024Q4

REPORT INFORMATION
  Report Type: Report from Study
  Country: GR (occurrence: GR)
  Receive Date: 20241017
  Receipt Date: 20241224
  Transmission Date: 20250115
  Serious: No
  Sender: TAKEDA
  Company Number: GR-TAKEDA-2024TUS095787

PATIENT
  Age: 52 Year
  Sex: Female

DRUGS (3)
  1. PARATHYROID HORMONE [Suspect]
     Active Substance: PARATHYROID HORMONE
     Indication: Autoimmune hypoparathyroidism
     Dosage: 75 MILLILITER, QD
  2. PARATHYROID HORMONE [Suspect]
     Active Substance: PARATHYROID HORMONE
     Dosage: UNK
  3. PARATHYROID HORMONE [Suspect]
     Active Substance: PARATHYROID HORMONE

REACTIONS (2)
  - Device malfunction [Not Recovered/Not Resolved]
  - Product dose omission issue [Unknown]
